FAERS Safety Report 10206818 (Version 1)
Quarter: 2014Q2

REPORT INFORMATION
  Report Type: Spontaneous
  Country: US (occurrence: None)
  Receive Date: 20140527
  Receipt Date: 20140527
  Transmission Date: 20141212
  Serious: Yes (Hospitalization)
  Sender: FDA-Public Use
  Company Number: None

PATIENT
  Age: 67 Year
  Sex: Female
  Weight: 68.9 kg

DRUGS (6)
  1. MELOXICAM [Suspect]
     Indication: PRODUCT USED FOR UNKNOWN INDICATION
     Dosage: 1?QD?ORAL
     Route: 048
  2. LOSARTAN (COZAAR) [Concomitant]
  3. MELOXICAM (MOBIC) [Concomitant]
  4. ACID (TRILIPIX) [Concomitant]
  5. FLUOXETINE (PROZAC) [Concomitant]
  6. OMEGA-3 ACID ETHYL ESTERS (LOVAZA) [Concomitant]

REACTIONS (2)
  - Rectal haemorrhage [None]
  - Dizziness [None]
